FAERS Safety Report 25996353 (Version 1)
Quarter: 2025Q4

REPORT INFORMATION
  Report Type: Spontaneous
  Country: CA (occurrence: CA)
  Receive Date: 20251104
  Receipt Date: 20251104
  Transmission Date: 20260118
  Serious: Yes (Hospitalization)
  Sender: Kenvue
  Company Number: CA-KENVUE-20251012157

PATIENT

DRUGS (2)
  1. ACETAMINOPHEN [Suspect]
     Active Substance: ACETAMINOPHEN
     Indication: Migraine
     Dosage: 650 MILLIGRAM
     Route: 048
  2. NAPROXEN [Suspect]
     Active Substance: NAPROXEN
     Indication: Migraine
     Dosage: 320 MILLIGRAM
     Route: 048

REACTIONS (10)
  - Vomiting [Unknown]
  - Amnesia [Unknown]
  - Dissociation [Unknown]
  - Headache [Unknown]
  - Incoherent [Unknown]
  - Loss of personal independence in daily activities [Unknown]
  - Medication overuse headache [Unknown]
  - Nausea [Unknown]
  - Photophobia [Unknown]
  - Poor school attendance [Unknown]
